FAERS Safety Report 25134839 (Version 1)
Quarter: 2025Q1

REPORT INFORMATION
  Report Type: Spontaneous
  Country: US (occurrence: None)
  Receive Date: 20250327
  Receipt Date: 20250327
  Transmission Date: 20250409
  Serious: Yes (Other)
  Sender: FDA-CTU
  Company Number: None

PATIENT
  Age: 39 Year
  Sex: Female
  Weight: 63 kg

DRUGS (9)
  1. VUEWAY [Suspect]
     Active Substance: GADOPICLENOL
     Indication: X-ray with contrast
     Route: 042
     Dates: start: 20250320, end: 20250320
  2. MAGNESIUM [Concomitant]
     Active Substance: MAGNESIUM
  3. OMEGA-3 ACIDS [Concomitant]
     Active Substance: OMEGA-3 FATTY ACIDS
  4. MENAQUINONE 6 [Concomitant]
     Active Substance: MENAQUINONE 6
  5. VITAMIN D [Concomitant]
     Active Substance: VITAMIN D NOS
  6. VITAMIN A [Concomitant]
     Active Substance: VITAMIN A
  7. Cruciferous vegetables [Concomitant]
  8. calcium-d-glycinate [Concomitant]
  9. salt water sinus rinse [Concomitant]

REACTIONS (4)
  - Back pain [None]
  - Bone pain [None]
  - Energy increased [None]
  - Anxiety [None]

NARRATIVE: CASE EVENT DATE: 20250320
